FAERS Safety Report 4448259-9 (Version None)
Quarter: 2004Q3

REPORT INFORMATION
  Report Type: 
  Country: None (occurrence: None)
  Receive Date: 20040910
  Receipt Date: 20040809
  Transmission Date: 20050211
  Serious: Yes (Hospitalization)
  Sender: FDA-Public Use
  Company Number: 23320040530

PATIENT
  Age: 73 Year
  Sex: Female

DRUGS (10)
  1. HYATE:C [Suspect]
     Indication: FACTOR VIII DEFICIENCY
     Dosage: 21300,000 IU (7100 IU,1 IN 8 HR)
     Route: 042
     Dates: start: 20040714, end: 20040718
  2. SOLU-MEDROL [Concomitant]
  3. NOVOLOG [Concomitant]
  4. SENOKOT [Concomitant]
  5. AMLODIPINE [Concomitant]
  6. CIPROFLOXACIN [Concomitant]
  7. INSULIN [Concomitant]
  8. LISINOPRIL [Concomitant]
  9. PANTOPRAZOLE [Concomitant]
  10. GENOSIDE [Concomitant]

REACTIONS (4)
  - ACUTE MYOCARDIAL INFARCTION [None]
  - BLOOD CHOLESTEROL INCREASED [None]
  - DIABETES MELLITUS [None]
  - LOW DENSITY LIPOPROTEIN INCREASED [None]
